FAERS Safety Report 25860607 (Version 2)
Quarter: 2025Q4

REPORT INFORMATION
  Report Type: Spontaneous
  Country: MX (occurrence: MX)
  Receive Date: 20250929
  Receipt Date: 20251003
  Transmission Date: 20260117
  Serious: Yes (Other)
  Sender: NOVARTIS
  Company Number: MX-002147023-NVSC2025MX147574

PATIENT
  Age: 30 Year
  Sex: Male

DRUGS (1)
  1. BASILIXIMAB [Suspect]
     Active Substance: BASILIXIMAB
     Indication: Kidney transplant rejection
     Dosage: UNK
     Route: 065

REACTIONS (5)
  - Non-Hodgkin^s lymphoma [Unknown]
  - Tubulointerstitial nephritis [Unknown]
  - Blood creatinine increased [Unknown]
  - Tissue infiltration [Unknown]
  - Lymphoid tissue hyperplasia [Unknown]
